FAERS Safety Report 19308550 (Version 1)
Quarter: 2021Q2

REPORT INFORMATION
  Report Type: Other
  Country: GB (occurrence: GB)
  Receive Date: 20210526
  Receipt Date: 20210526
  Transmission Date: 20210717
  Serious: Yes (Hospitalization, Other)
  Sender: FDA-Public Use
  Company Number: GB-ROCHE-2832898

PATIENT

DRUGS (5)
  1. DOXORUBICIN [Suspect]
     Active Substance: DOXORUBICIN
     Indication: DIFFUSE LARGE B-CELL LYMPHOMA
     Route: 065
  2. VINCRISTINE [Suspect]
     Active Substance: VINCRISTINE
     Indication: DIFFUSE LARGE B-CELL LYMPHOMA
     Route: 065
  3. RITUXIMAB. [Suspect]
     Active Substance: RITUXIMAB
     Indication: DIFFUSE LARGE B-CELL LYMPHOMA
     Route: 065
  4. CYCLOPHOSPHAMIDE. [Suspect]
     Active Substance: CYCLOPHOSPHAMIDE
     Indication: DIFFUSE LARGE B-CELL LYMPHOMA
     Route: 065
  5. PREDNISOLONE. [Suspect]
     Active Substance: PREDNISOLONE
     Indication: DIFFUSE LARGE B-CELL LYMPHOMA
     Route: 065

REACTIONS (16)
  - Clavicle fracture [Unknown]
  - Scapula fracture [Unknown]
  - Acetabulum fracture [Unknown]
  - Wrist fracture [Unknown]
  - Thoracic vertebral fracture [Unknown]
  - Femur fracture [Unknown]
  - Pelvic fracture [Unknown]
  - Lumbar vertebral fracture [Unknown]
  - Spinal fracture [Unknown]
  - Upper limb fracture [Unknown]
  - Ankle fracture [Unknown]
  - Fracture [Unknown]
  - Rib fracture [Unknown]
  - Fractured sacrum [Unknown]
  - Humerus fracture [Unknown]
  - Forearm fracture [Unknown]
